FAERS Safety Report 8600177-8 (Version None)
Quarter: 2012Q3

REPORT INFORMATION
  Report Type: 
  Country: None (occurrence: None)
  Receive Date: 20120817
  Receipt Date: 20120807
  Transmission Date: 20120928
  Serious: Yes (Hospitalization)
  Sender: FDA-Public Use
  Company Number: US-BIOGENIDEC-2010BI000133

PATIENT
  Age: 51 Year
  Sex: Male

DRUGS (4)
  1. AVONEX [Suspect]
     Route: 030
  2. AVONEX [Suspect]
     Route: 030
     Dates: start: 20041101
  3. AVONEX [Suspect]
     Indication: MULTIPLE SCLEROSIS
     Route: 030
  4. AVONEX [Suspect]
     Route: 030
     Dates: start: 20010329

REACTIONS (5)
  - LIP AND/OR ORAL CAVITY CANCER STAGE IV [None]
  - BRAIN OPERATION [None]
  - NEOPLASM MALIGNANT [None]
  - OESOPHAGEAL CARCINOMA [None]
  - INJECTION SITE ERYTHEMA [None]
